FAERS Safety Report 4535660-8 (Version None)
Quarter: 2004Q4

REPORT INFORMATION
  Report Type: 
  Country: None (occurrence: None)
  Receive Date: 20041223
  Receipt Date: 20030623
  Transmission Date: 20050328
  Serious: No
  Sender: FDA-Public Use
  Company Number: US-GLAXOSMITHKLINE-A0413843A

PATIENT
  Age: 40 Year
  Sex: Male

DRUGS (4)
  1. FLONASE [Suspect]
     Dosage: 2SPR PER DAY
     Route: 045
     Dates: start: 20021001, end: 20030301
  2. ADVAIR [Suspect]
     Indication: ASTHMA
     Dosage: 1PUFF VARIABLE DOSE
     Route: 055
     Dates: start: 20020101, end: 20030301
  3. STEROID [Suspect]
     Indication: ILL-DEFINED DISORDER
  4. ZYRTEC [Concomitant]

REACTIONS (8)
  - ASTHMA [None]
  - DERMATITIS [None]
  - DRUG INEFFECTIVE [None]
  - PRURITUS [None]
  - RASH VESICULAR [None]
  - SKIN DESQUAMATION [None]
  - SKIN ULCER [None]
  - URTICARIA [None]
